FAERS Safety Report 20533565 (Version 2)
Quarter: 2022Q3

REPORT INFORMATION
  Report Type: Report from Study
  Country: US (occurrence: US)
  Receive Date: 20220301
  Receipt Date: 20220803
  Transmission Date: 20221026
  Serious: Yes (Hospitalization)
  Sender: FDA-Public Use
  Company Number: US-GILEAD-2022-0570093

PATIENT
  Age: 76 Year
  Sex: Male
  Weight: 143 kg

DRUGS (20)
  1. SACITUZUMAB GOVITECAN [Suspect]
     Active Substance: SACITUZUMAB GOVITECAN
     Indication: Lung cancer metastatic
     Dosage: 10 MG/KG CYCLE 1 DAY 1 AND DAY 8
     Route: 042
     Dates: start: 20220204, end: 20220211
  2. ALBUTEROL SULFATE [Concomitant]
     Active Substance: ALBUTEROL SULFATE
     Indication: Chronic obstructive pulmonary disease
  3. NORVASC [Concomitant]
     Active Substance: AMLODIPINE BESYLATE
  4. TENORMIN [Concomitant]
     Active Substance: ATENOLOL
  5. LIPITOR [Concomitant]
     Active Substance: ATORVASTATIN CALCIUM
  6. ERGOCALCIFEROL [Concomitant]
     Active Substance: ERGOCALCIFEROL
  7. CATAPRES [Concomitant]
     Active Substance: CLONIDINE HYDROCHLORIDE
  8. CYANOCOBALAMIN [Concomitant]
     Active Substance: CYANOCOBALAMIN
  9. VICKS NYQUIL D COLD+FLU NIGHTTIME RELIEF [Concomitant]
  10. ENALAPRILAT [Concomitant]
     Active Substance: ENALAPRILAT
  11. OXYGEN [Concomitant]
     Active Substance: OXYGEN
  12. MELATONIN [Concomitant]
     Active Substance: MELATONIN
  13. INCRUSE ELLIPTA [Concomitant]
     Active Substance: UMECLIDINIUM BROMIDE
  14. FAMOTIDINE [Concomitant]
     Active Substance: FAMOTIDINE
  15. DECADRON [Concomitant]
     Active Substance: DEXAMETHASONE
  16. TYLENOL [Concomitant]
     Active Substance: ACETAMINOPHEN
  17. BENADRYL [Concomitant]
     Active Substance: DIPHENHYDRAMINE HYDROCHLORIDE
  18. ALOXI [Concomitant]
     Active Substance: PALONOSETRON HYDROCHLORIDE
  19. IMODIUM [Concomitant]
     Active Substance: LOPERAMIDE HYDROCHLORIDE
  20. ZOFRAN [Concomitant]
     Active Substance: ONDANSETRON HYDROCHLORIDE

REACTIONS (3)
  - Dyspnoea [Recovered/Resolved with Sequelae]
  - Dyspnoea [Recovered/Resolved]
  - Enterocolitis infectious [Recovered/Resolved]

NARRATIVE: CASE EVENT DATE: 20220214
